FAERS Safety Report 9748936 (Version 2)
Quarter: 2013Q4

REPORT INFORMATION
  Report Type: Spontaneous
  Country: US (occurrence: US)
  Receive Date: 20131212
  Receipt Date: 20131212
  Transmission Date: 20140711
  Serious: No
  Sender: FDA-Public Use
  Company Number: US-INCYTE CORPORATION-2013IN000464

PATIENT
  Sex: Female
  Weight: 72.2 kg

DRUGS (10)
  1. JAKAFI [Suspect]
     Indication: POLYCYTHAEMIA VERA
     Dosage: 5 MG, BID
     Route: 048
     Dates: start: 20120602
  2. JAKAFI [Suspect]
     Dosage: NOT SPECIFIED (DOSE DECREASED)
     Route: 048
  3. ZOLPIDEM [Concomitant]
  4. FUROSEMIDE [Concomitant]
  5. ICAPS [Concomitant]
  6. ALLOPURINOL [Concomitant]
  7. LEVOTHYROXINE [Concomitant]
  8. VERAPAMIL ER [Concomitant]
  9. MULTIVITAMIN [Concomitant]
  10. OMEPRAZOLE [Concomitant]

REACTIONS (5)
  - Visual impairment [Unknown]
  - Splenomegaly [Unknown]
  - Tooth disorder [Unknown]
  - Fatigue [Unknown]
  - Platelet count decreased [Unknown]
